FAERS Safety Report 21833210 (Version 2)
Quarter: 2023Q1

REPORT INFORMATION
  Report Type: Report from Study
  Country: BR (occurrence: BR)
  Receive Date: 20230106
  Receipt Date: 20230324
  Transmission Date: 20230418
  Serious: Yes (Hospitalization)
  Sender: FDA-Public Use
  Company Number: BR-CELLTRION INC.-2022BR022133

PATIENT

DRUGS (5)
  1. INFLIXIMAB [Suspect]
     Active Substance: INFLIXIMAB
     Indication: Crohn^s disease
     Dosage: 4 AMPOULES EVERY 8 WEEKS
     Route: 042
  2. LOSARTAN POTASSIUM [Concomitant]
     Active Substance: LOSARTAN POTASSIUM
     Indication: Hypertension
     Dosage: 2CP/DAY; START: 6 MONTHS AGO // STOP: CONTINUOS
     Route: 048
  3. RIVOTRIL [Concomitant]
     Active Substance: CLONAZEPAM
     Indication: Sleep disorder
     Dosage: 5 DROPS/DAY; START: 7YERAS AGO // STOP: CONTINUOS
     Route: 048
  4. NORTRIPTYLINE [Concomitant]
     Active Substance: NORTRIPTYLINE
     Indication: Anxiety
     Dosage: 4CP/DAY; START: 9 MONTHS AGO // STOP: CONTINUOS
     Route: 048
  5. COVID-19 VACCINE [Concomitant]

REACTIONS (11)
  - Discouragement [Unknown]
  - Malaise [Unknown]
  - Fatigue [Unknown]
  - Pain in extremity [Unknown]
  - Abdominal distension [Unknown]
  - Muscle spasms [Unknown]
  - Abdominal pain [Unknown]
  - Headache [Unknown]
  - Constipation [Unknown]
  - Treatment delayed [Unknown]
  - Intentional dose omission [Unknown]

NARRATIVE: CASE EVENT DATE: 20220801
